FAERS Safety Report 20432910 (Version 2)
Quarter: 2022Q1

REPORT INFORMATION
  Report Type: Spontaneous
  Country: US (occurrence: US)
  Receive Date: 20220205
  Receipt Date: 20220211
  Transmission Date: 20220423
  Serious: No
  Sender: FDA-Public Use
  Company Number: US-SA-SAC20220127001058

PATIENT
  Sex: Female
  Weight: 91.6 kg

DRUGS (20)
  1. FABRAZYME [Suspect]
     Active Substance: AGALSIDASE BETA
     Indication: Fabry^s disease
     Dosage: 95 MG, QOW
     Route: 041
     Dates: start: 20121130
  2. FABRAZYME [Suspect]
     Active Substance: AGALSIDASE BETA
     Indication: Lipidosis
  3. EMGALITY [Concomitant]
     Active Substance: GALCANEZUMAB-GNLM
  4. EMGALITY [Concomitant]
     Active Substance: GALCANEZUMAB-GNLM
  5. UBRELVY [Concomitant]
     Active Substance: UBROGEPANT
  6. UBRELVY [Concomitant]
     Active Substance: UBROGEPANT
  7. EXCEDRIN MIGRAINE [Concomitant]
     Active Substance: ACETAMINOPHEN\ASPIRIN\CAFFEINE
  8. EXCEDRIN MIGRAINE [Concomitant]
     Active Substance: ACETAMINOPHEN\ASPIRIN\CAFFEINE
  9. DIPHENHYDRAMINE [Concomitant]
     Active Substance: DIPHENHYDRAMINE
  10. DIPHENHYDRAMINE [Concomitant]
     Active Substance: DIPHENHYDRAMINE
  11. HEPARIN [Concomitant]
     Active Substance: HEPARIN SODIUM
  12. HEPARIN [Concomitant]
     Active Substance: HEPARIN SODIUM
  13. LIDOCAINE [Concomitant]
     Active Substance: LIDOCAINE
  14. LIDOCAINE [Concomitant]
     Active Substance: LIDOCAINE
  15. SODIUM CHLORIDE [Concomitant]
     Active Substance: SODIUM CHLORIDE
  16. SODIUM CHLORIDE [Concomitant]
     Active Substance: SODIUM CHLORIDE
  17. SOLU-CORTEF [Concomitant]
     Active Substance: HYDROCORTISONE SODIUM SUCCINATE
  18. SOLU-CORTEF [Concomitant]
     Active Substance: HYDROCORTISONE SODIUM SUCCINATE
  19. YASMIN [Concomitant]
     Active Substance: DROSPIRENONE\ETHINYL ESTRADIOL
  20. YASMIN [Concomitant]
     Active Substance: DROSPIRENONE\ETHINYL ESTRADIOL

REACTIONS (2)
  - Weight increased [Unknown]
  - Unevaluable event [Unknown]
